FAERS Safety Report 7413573-1 (Version None)
Quarter: 2011Q2

REPORT INFORMATION
  Report Type: 
  Country: None (occurrence: None)
  Receive Date: 20110413
  Receipt Date: 20110128
  Transmission Date: 20111010
  Serious: No
  Sender: FDA-Public Use
  Company Number: US-B.I. PHARMACEUTICALS,INC./RIDGEFIELD-2011-BP-02902BP

PATIENT
  Sex: Male

DRUGS (6)
  1. PRAVASTATIN [Concomitant]
     Indication: BLOOD CHOLESTEROL INCREASED
     Dosage: 40 MG
  2. PAROXETINE [Concomitant]
     Dosage: 20 MG
  3. PRADAXA [Suspect]
     Indication: ATRIAL FIBRILLATION
     Dosage: 300 MG
     Route: 048
     Dates: start: 20110112
  4. METOPROLOL TARTRATE [Concomitant]
     Dosage: 25 MG
  5. OMEPRAZOLE [Concomitant]
     Indication: FLATULENCE
     Dosage: 20 MG
  6. LYRICA [Concomitant]
     Dosage: 75 MG

REACTIONS (1)
  - SOMNOLENCE [None]
